FAERS Safety Report 4757968-3 (Version None)
Quarter: 2005Q3

REPORT INFORMATION
  Report Type: 
  Country: None (occurrence: None)
  Receive Date: 20050830
  Receipt Date: 20050817
  Transmission Date: 20060218
  Serious: Yes (Death)
  Sender: FDA-Public Use
  Company Number: US-2005-016912

PATIENT
  Age: 45 Year
  Sex: Female
  Weight: 134.7 kg

DRUGS (8)
  1. CAMPATH [Suspect]
     Indication: MULTIPLE SCLEROSIS
     Dosage: 12 MG, 1X/DAY, INTRAVENOUS
     Route: 042
     Dates: start: 20030407, end: 20030411
  2. CAMPATH [Suspect]
     Indication: MULTIPLE SCLEROSIS
     Dosage: 12 MG, 1X/DAY, INTRAVENOUS
     Route: 042
     Dates: start: 20040419, end: 20040421
  3. CAMPATH [Suspect]
     Indication: MULTIPLE SCLEROSIS
     Dosage: 12 MG, 1X/DAY, INTRAVENOUS
     Route: 042
     Dates: start: 20050502, end: 20050504
  4. TRIAMTERENE AND HYDROCHLOROTHIAZID ^HARRIS^ [Concomitant]
  5. CALCIUM (CALCIUM) [Concomitant]
  6. VITAMIN B COMPLEX CAP [Concomitant]
  7. MULTIVITAMINS (PANTHENOL, RETINOL) [Concomitant]
  8. NAPROXEN [Concomitant]

REACTIONS (4)
  - CARDIOVASCULAR DISORDER [None]
  - HYPERTENSION [None]
  - MALAISE [None]
  - PLATELET COUNT DECREASED [None]
